FAERS Safety Report 23248913 (Version 1)
Quarter: 2023Q4

REPORT INFORMATION
  Report Type: Spontaneous
  Country: PL (occurrence: PL)
  Receive Date: 20231201
  Receipt Date: 20231201
  Transmission Date: 20240109
  Serious: Yes (Other)
  Sender: FDA-Public Use
  Company Number: PL-SUN PHARMACEUTICAL INDUSTRIES LTD-2023RR-418719

PATIENT
  Age: 71 Year
  Sex: Male

DRUGS (2)
  1. IMATINIB [Suspect]
     Active Substance: IMATINIB
     Indication: Chronic myeloid leukaemia
     Dosage: 400 MILLIGRAM, ONCE A DAY (400 MILLIGRAM, DAILY)
     Route: 065
  2. DASATINIB [Suspect]
     Active Substance: DASATINIB
     Indication: Product used for unknown indication
     Dosage: 140 MILLIGRAM, ONCE A DAY (140 MILLIGRAM, DAILY)
     Route: 065

REACTIONS (5)
  - Pleural effusion [Unknown]
  - Disease recurrence [Unknown]
  - Skin lesion [Unknown]
  - Disease progression [Unknown]
  - Drug resistance [Unknown]
